FAERS Safety Report 9374782 (Version 2)
Quarter: 2013Q3

REPORT INFORMATION
  Report Type: Spontaneous
  Country: FR (occurrence: FR)
  Receive Date: 20130628
  Receipt Date: 20130725
  Transmission Date: 20140515
  Serious: Yes (Death)
  Sender: FDA-Public Use
  Company Number: FR-ASTRAZENECA-2013SE48475

PATIENT
  Age: 18726 Day
  Sex: Female

DRUGS (7)
  1. DIPRIVAN [Suspect]
     Route: 042
     Dates: start: 20130429, end: 20130429
  2. CELOCURINE [Suspect]
     Route: 042
     Dates: start: 20130429, end: 20130429
  3. SUFENTANIL [Suspect]
     Route: 042
     Dates: start: 20130429, end: 20130429
  4. KETAMINE [Suspect]
     Route: 042
     Dates: start: 20130429, end: 20130429
  5. AVLOCARDYL [Concomitant]
     Indication: HYPERTENSION
     Route: 048
  6. FLUDEX [Concomitant]
     Indication: HYPERTENSION
     Route: 048
  7. LOXEN SR [Concomitant]
     Indication: HYPERTENSION

REACTIONS (2)
  - Anaphylactic shock [Fatal]
  - Cardiac arrest [Fatal]
